FAERS Safety Report 9621224 (Version 1)
Quarter: 2013Q4

REPORT INFORMATION
  Report Type: Report from Study
  Country: AR (occurrence: AR)
  Receive Date: 20131015
  Receipt Date: 20131015
  Transmission Date: 20140711
  Serious: Yes (Hospitalization)
  Sender: FDA-Public Use
  Company Number: PHHY2013AR114787

PATIENT
  Age: 68 Year
  Sex: Male

DRUGS (2)
  1. DIOVAN [Suspect]
     Indication: HYPERTENSION
     Dosage: 1 DF (80 VALS), PER DAY
     Route: 048
     Dates: start: 201104, end: 201106
  2. DIOVAN [Suspect]
     Dosage: 320 (UNSPECIFIED UNIT)
     Route: 048

REACTIONS (6)
  - Haemorrhagic stroke [Recovered/Resolved with Sequelae]
  - Paralysis [Unknown]
  - Mobility decreased [Unknown]
  - Speech disorder [Unknown]
  - Balance disorder [Unknown]
  - Diplopia [Unknown]
